FAERS Safety Report 15520001 (Version 1)
Quarter: 2018Q4

REPORT INFORMATION
  Report Type: Report from Study
  Country: US (occurrence: US)
  Receive Date: 20181017
  Receipt Date: 20181017
  Transmission Date: 20190205
  Serious: No
  Sender: FDA-Public Use
  Company Number: US-AMGEN-USASL2018103065

PATIENT
  Age: 73 Year
  Sex: Female

DRUGS (3)
  1. REPATHA [Suspect]
     Active Substance: EVOLOCUMAB
     Dosage: UNK, Q2WK
     Route: 065
     Dates: start: 20180430
  2. REPATHA [Suspect]
     Active Substance: EVOLOCUMAB
     Indication: TYPE V HYPERLIPIDAEMIA
     Dosage: UNK, Q2WK
     Route: 065
     Dates: start: 20180121
  3. REPATHA [Suspect]
     Active Substance: EVOLOCUMAB
     Dosage: UNK, Q2WK
     Route: 065
     Dates: start: 20180218

REACTIONS (1)
  - Injection site pain [Unknown]

NARRATIVE: CASE EVENT DATE: 20180121
